FAERS Safety Report 4624180-8 (Version None)
Quarter: 2005Q1

REPORT INFORMATION
  Report Type: 
  Country: None (occurrence: None)
  Receive Date: 20050331
  Receipt Date: 20050318
  Transmission Date: 20050727
  Serious: Yes (Hospitalization)
  Sender: FDA-Public Use
  Company Number: SE-GLAXOSMITHKLINE-B0375931A

PATIENT
  Age: 77 Year
  Sex: Female

DRUGS (6)
  1. VALTREX [Suspect]
     Indication: HERPES ZOSTER
     Dosage: 500MG UNKNOWN
     Route: 048
     Dates: start: 20040723, end: 20040724
  2. ZOLOFT [Concomitant]
  3. ORALOVITE [Concomitant]
  4. DUPHALAC [Concomitant]
  5. TRIOBE [Concomitant]
  6. NEXIUM [Concomitant]

REACTIONS (8)
  - C-REACTIVE PROTEIN INCREASED [None]
  - CONFUSIONAL STATE [None]
  - FAECAL INCONTINENCE [None]
  - HALLUCINATION, VISUAL [None]
  - PSYCHOTIC DISORDER [None]
  - PYREXIA [None]
  - SPEECH DISORDER [None]
  - URINARY INCONTINENCE [None]
